FAERS Safety Report 9222347 (Version 1)
Quarter: 2013Q1

REPORT INFORMATION
  Report Type: Spontaneous
  Country: US (occurrence: None)
  Receive Date: 20120914
  Receipt Date: 20120914
  Transmission Date: 20140127
  Serious: Yes (Other)
  Sender: FDA-Public Use
  Company Number: JPI-P-015925

PATIENT
  Age: 56 Year
  Sex: Female
  Weight: 54.43 kg

DRUGS (5)
  1. XYREM (500 MILLIGRAM/MILLILITERS, SOLUTION) (SODIUM OXYBATE) [Suspect]
     Indication: NARCOLEPSY
     Dosage: 3 GM (1.5 GM,2 IN 1 D)
     Route: 048
     Dates: start: 20080808
  2. TRAMADOL [Suspect]
     Indication: PAIN
     Dates: start: 20110706
  3. BLOOD PRESSURE MEDICATIONS [Concomitant]
  4. ESCITALOPRAM [Concomitant]
  5. VITAMINS [Concomitant]

REACTIONS (7)
  - Rib fracture [None]
  - Cartilage injury [None]
  - Fall [None]
  - Somnambulism [None]
  - Foot fracture [None]
  - Disorientation [None]
  - Nausea [None]
